FAERS Safety Report 13360245 (Version 4)
Quarter: 2017Q2

REPORT INFORMATION
  Report Type: Spontaneous
  Country: US (occurrence: US)
  Receive Date: 20170322
  Receipt Date: 20170419
  Transmission Date: 20170830
  Serious: Yes (Hospitalization, Other)
  Sender: FDA-Public Use
  Company Number: US-BAUSCH-BL-2017-007250

PATIENT
  Sex: Female
  Weight: 54.25 kg

DRUGS (19)
  1. ALDACTONE [Suspect]
     Active Substance: SPIRONOLACTONE
     Indication: ABDOMINAL DISTENSION
     Route: 048
  2. PAXIL [Concomitant]
     Active Substance: PAROXETINE HYDROCHLORIDE
     Indication: DEPRESSION
  3. ALDACTONE [Suspect]
     Active Substance: SPIRONOLACTONE
     Indication: HEPATIC CIRRHOSIS
     Route: 048
  4. PROLIA [Concomitant]
     Active Substance: DENOSUMAB
     Indication: HEPATIC CIRRHOSIS
     Route: 058
  5. ALDACTONE [Suspect]
     Active Substance: SPIRONOLACTONE
     Route: 048
  6. XIFAXAN [Suspect]
     Active Substance: RIFAXIMIN
     Indication: HEPATIC CIRRHOSIS
     Route: 048
     Dates: start: 20160726, end: 201703
  7. WELLBUTRIN SR [Concomitant]
     Active Substance: BUPROPION HYDROCHLORIDE
     Indication: DEPRESSION
     Dosage: 2 HOUR
     Route: 048
  8. LASIX [Suspect]
     Active Substance: FUROSEMIDE
     Indication: HEPATIC CIRRHOSIS
     Route: 048
  9. LASIX [Suspect]
     Active Substance: FUROSEMIDE
     Route: 048
  10. ZOFRAN [Concomitant]
     Active Substance: ONDANSETRON HYDROCHLORIDE
     Indication: NAUSEA
     Dosage: ONE TABLET FOUR TIMES A DAY PRN (WHENEVER REQUIRED)
     Route: 048
  11. PAXIL [Concomitant]
     Active Substance: PAROXETINE HYDROCHLORIDE
     Indication: ANXIETY
  12. XIFAXAN [Suspect]
     Active Substance: RIFAXIMIN
     Indication: HEPATIC ENCEPHALOPATHY
  13. LASIX [Suspect]
     Active Substance: FUROSEMIDE
     Indication: ABDOMINAL DISTENSION
     Route: 048
  14. FUROSEMIDE. [Concomitant]
     Active Substance: FUROSEMIDE
     Indication: HEPATIC CIRRHOSIS
     Route: 048
  15. METFORMIN HYDROCHLORIDE. [Concomitant]
     Active Substance: METFORMIN HYDROCHLORIDE
     Indication: TYPE 2 DIABETES MELLITUS
     Dosage: WITH MEALS
     Route: 048
  16. LASIX [Suspect]
     Active Substance: FUROSEMIDE
     Route: 048
  17. REMICADE [Concomitant]
     Active Substance: INFLIXIMAB
     Indication: RHEUMATOID ARTHRITIS
     Dosage: RECONSTITUTED AS DIRECTED
     Route: 042
  18. PANTOPRAZOLE SODIUM. [Concomitant]
     Active Substance: PANTOPRAZOLE SODIUM
     Indication: GASTROOESOPHAGEAL REFLUX DISEASE
     Route: 048
  19. NADOLOL. [Concomitant]
     Active Substance: NADOLOL
     Indication: HEPATIC CIRRHOSIS
     Route: 048

REACTIONS (10)
  - Feeling abnormal [Unknown]
  - Weight decreased [Not Recovered/Not Resolved]
  - Condition aggravated [Recovered/Resolved]
  - Arteriovenous malformation [Recovered/Resolved]
  - Memory impairment [Unknown]
  - Hepatic cirrhosis [Unknown]
  - Haematochezia [Recovered/Resolved]
  - Confusional state [Unknown]
  - Diarrhoea [Recovered/Resolved]
  - Drug dose omission [Unknown]

NARRATIVE: CASE EVENT DATE: 2017
